FAERS Safety Report 13835950 (Version 1)
Quarter: 2017Q3

REPORT INFORMATION
  Report Type: Spontaneous
  Country: CA (occurrence: CA)
  Receive Date: 20170804
  Receipt Date: 20170804
  Transmission Date: 20171127
  Serious: Yes (Other)
  Sender: FDA-Public Use
  Company Number: CA-AMGEN-CANSP2017116197

PATIENT
  Age: 63 Year
  Sex: Female

DRUGS (9)
  1. PREDNISONE. [Concomitant]
     Active Substance: PREDNISONE
     Dosage: 20 MG, QD
  2. ORENCIA [Concomitant]
     Active Substance: ABATACEPT
  3. ENBREL [Suspect]
     Active Substance: ETANERCEPT
     Indication: RHEUMATOID ARTHRITIS
     Dosage: UNK
     Route: 065
  4. METHOTREXATE. [Concomitant]
     Active Substance: METHOTREXATE
     Indication: RHEUMATOID ARTHRITIS
     Dosage: UNK
  5. ARAVA [Concomitant]
     Active Substance: LEFLUNOMIDE
     Indication: RHEUMATOID ARTHRITIS
     Dosage: 20 MG, QD
  6. GOLD [Concomitant]
     Active Substance: GOLD
  7. HUMIRA [Concomitant]
     Active Substance: ADALIMUMAB
  8. XELJANZ [Concomitant]
     Active Substance: TOFACITINIB CITRATE
     Indication: RHEUMATOID ARTHRITIS
     Dosage: 5 MG, BID
     Route: 048
     Dates: start: 20170726
  9. ACTEMRA [Concomitant]
     Active Substance: TOCILIZUMAB

REACTIONS (12)
  - Furuncle [Unknown]
  - Cerebrovascular accident [Unknown]
  - Sleep disorder [Unknown]
  - Arthralgia [Unknown]
  - Musculoskeletal pain [Unknown]
  - Disability [Unknown]
  - Drug effect decreased [Unknown]
  - Headache [Unknown]
  - Temporal arteritis [Unknown]
  - Foot deformity [Unknown]
  - Blindness unilateral [Unknown]
  - Pain in extremity [Unknown]

NARRATIVE: CASE EVENT DATE: 2014
